FAERS Safety Report 8502402-0 (Version None)
Quarter: 2012Q2

REPORT INFORMATION
  Report Type: 
  Country: None (occurrence: None)
  Receive Date: 20120405
  Receipt Date: 20100506
  Transmission Date: 20120825
  Serious: Yes (Hospitalization, Disabling, Other)
  Sender: FDA-Public Use
  Company Number: PHHY2010US28295

PATIENT
  Age: 57 Year
  Sex: Female
  Weight: 57.1 kg

DRUGS (2)
  1. RECLAST [Suspect]
     Indication: OSTEOPOROSIS
     Dosage: 5 MG/100 ML, IV INFUSION
     Route: 042
     Dates: start: 20100423
  2. LIPITOR [Concomitant]

REACTIONS (7)
  - PROTHROMBIN TIME PROLONGED [None]
  - MUSCULOSKELETAL CHEST PAIN [None]
  - BONE PAIN [None]
  - PYREXIA [None]
  - DYSPNOEA [None]
  - INTERNATIONAL NORMALISED RATIO INCREASED [None]
  - WHITE BLOOD CELL COUNT INCREASED [None]
